FAERS Safety Report 14019144 (Version 1)
Quarter: 2017Q3

REPORT INFORMATION
  Report Type: Spontaneous
  Country: DE (occurrence: DE)
  Receive Date: 20170928
  Receipt Date: 20170928
  Transmission Date: 20171128
  Serious: Yes (Other)
  Sender: FDA-Public Use
  Company Number: DE-AMGEN-DEUSP2017143939

PATIENT
  Sex: Female

DRUGS (6)
  1. VERAPAMIL [Concomitant]
     Active Substance: VERAPAMIL HYDROCHLORIDE
     Dosage: 80 MG, UNK
  2. REPATHA [Suspect]
     Active Substance: EVOLOCUMAB
     Indication: HYPERCHOLESTEROLAEMIA
     Dosage: 140 MG, UNK
     Route: 065
  3. CHOLESTAGEL [Concomitant]
     Active Substance: COLESEVELAM HYDROCHLORIDE
     Dosage: UNK UNK, TID
  4. ASPIRIN. [Concomitant]
     Active Substance: ASPIRIN
  5. RELVAR [Concomitant]
     Active Substance: FLUTICASONE FUROATE\VILANTEROL TRIFENATATE
  6. EZETROL [Concomitant]
     Active Substance: EZETIMIBE
     Dosage: 10 MG, UNK

REACTIONS (1)
  - Dyspnoea [Unknown]
